FAERS Safety Report 9324293 (Version 2)
Quarter: 2013Q2

REPORT INFORMATION
  Report Type: Spontaneous
  Country: CA (occurrence: CA)
  Receive Date: 20130603
  Receipt Date: 20130604
  Transmission Date: 20140414
  Serious: Yes (Other)
  Sender: FDA-Public Use
  Company Number: PHHY2013CA055298

PATIENT
  Sex: Male

DRUGS (1)
  1. FIORINAL-C 1/2 [Suspect]
     Dosage: UNK UKN, UNK

REACTIONS (12)
  - Cushing^s syndrome [Unknown]
  - Diabetes mellitus [Unknown]
  - Self injurious behaviour [Unknown]
  - Loss of consciousness [Unknown]
  - Drug dependence [Unknown]
  - Blood glucose decreased [Unknown]
  - Muscle spasms [Unknown]
  - Migraine [Unknown]
  - Feeling abnormal [Unknown]
  - Aphagia [Unknown]
  - Pain [Unknown]
  - Somnambulism [Unknown]
